FAERS Safety Report 25127395 (Version 2)
Quarter: 2025Q2

REPORT INFORMATION
  Report Type: Spontaneous
  Country: SE (occurrence: SE)
  Receive Date: 20250327
  Receipt Date: 20250515
  Transmission Date: 20250716
  Serious: Yes (Other)
  Sender: BRISTOL-MYERS SQUIBB COMPANY
  Company Number: SE-BRISTOL-MYERS SQUIBB COMPANY-2025-043716

PATIENT
  Age: 77 Year
  Sex: Male

DRUGS (1)
  1. FEDRATINIB [Suspect]
     Active Substance: FEDRATINIB
     Indication: Primary myelofibrosis

REACTIONS (3)
  - Neuropathy peripheral [Unknown]
  - Peripheral sensorimotor neuropathy [Unknown]
  - Lumbosacral radiculopathy [Unknown]
